FAERS Safety Report 20156370 (Version 1)
Quarter: 2021Q4

REPORT INFORMATION
  Report Type: Spontaneous
  Country: FR (occurrence: FR)
  Receive Date: 20211207
  Receipt Date: 20211207
  Transmission Date: 20220303
  Serious: Yes (Hospitalization)
  Sender: FDA-Public Use
  Company Number: None

PATIENT
  Age: 34 Year
  Sex: Male

DRUGS (1)
  1. SEVOFLURANE [Suspect]
     Active Substance: SEVOFLURANE
     Indication: Bronchospasm
     Route: 055
     Dates: start: 20210922, end: 20211005

REACTIONS (1)
  - Nephrogenic diabetes insipidus [Recovered/Resolved]

NARRATIVE: CASE EVENT DATE: 20211001
